FAERS Safety Report 10026994 (Version 2)
Quarter: 2014Q3

REPORT INFORMATION
  Report Type: Spontaneous
  Country: GB (occurrence: GB)
  Receive Date: 20140321
  Receipt Date: 20140820
  Transmission Date: 20150326
  Serious: Yes (Hospitalization, Other)
  Sender: FDA-Public Use
  Company Number: GB-ROCHE-1363442

PATIENT
  Age: 47 Year
  Sex: Male

DRUGS (3)
  1. CAPECITABINE [Suspect]
     Active Substance: CAPECITABINE
     Indication: METASTASES TO LIVER
     Route: 065
  2. ZAPONEX [Suspect]
     Active Substance: CLOZAPINE
     Indication: SCHIZOPHRENIA
     Route: 046
     Dates: start: 20091218, end: 20111107
  3. ZAPONEX [Suspect]
     Active Substance: CLOZAPINE
     Route: 048
     Dates: start: 20111216

REACTIONS (10)
  - White blood cell count increased [Recovered/Resolved]
  - Intestinal obstruction [Unknown]
  - Platelet count decreased [Not Recovered/Not Resolved]
  - Adenocarcinoma of colon [Not Recovered/Not Resolved]
  - Fall [Unknown]
  - Neutrophil count increased [Recovered/Resolved]
  - Rectosigmoid cancer [Not Recovered/Not Resolved]
  - Off label use [Unknown]
  - Malaise [Not Recovered/Not Resolved]
  - Metastases to liver [Not Recovered/Not Resolved]

NARRATIVE: CASE EVENT DATE: 201111
